FAERS Safety Report 21180035 (Version 1)
Quarter: 2022Q3

REPORT INFORMATION
  Report Type: Spontaneous
  Country: US (occurrence: None)
  Receive Date: 20220805
  Receipt Date: 20220805
  Transmission Date: 20221027
  Serious: Yes (Hospitalization)
  Sender: FDA-Public Use
  Company Number: None

PATIENT
  Sex: Female

DRUGS (3)
  1. DALFAMPRIDINE [Suspect]
     Active Substance: DALFAMPRIDINE
  2. LYRICA CAP [Concomitant]
  3. OCREVUS [Concomitant]
     Active Substance: OCRELIZUMAB

REACTIONS (2)
  - Gait disturbance [None]
  - Pulmonary thrombosis [None]
